FAERS Safety Report 7504501-9 (Version None)
Quarter: 2011Q2

REPORT INFORMATION
  Report Type: 
  Country: None (occurrence: None)
  Receive Date: 20110525
  Receipt Date: 20110518
  Transmission Date: 20111010
  Serious: Yes (Hospitalization, Disabling, Other)
  Sender: FDA-Public Use
  Company Number: US-US-EMD SERONO, INC.-7060727

PATIENT
  Sex: Female
  Weight: 72 kg

DRUGS (1)
  1. REBIF [Suspect]
     Indication: MULTIPLE SCLEROSIS
     Route: 058
     Dates: start: 20050518

REACTIONS (4)
  - CONVULSION [None]
  - CHOLECYSTITIS INFECTIVE [None]
  - URINARY TRACT INFECTION [None]
  - ASTHENIA [None]
